FAERS Safety Report 8909294 (Version 1)
Quarter: 2012Q4

REPORT INFORMATION
  Report Type: Spontaneous
  Country: IT (occurrence: None)
  Receive Date: 20121107
  Receipt Date: 20121107
  Transmission Date: 20130627
  Serious: Yes (Hospitalization)
  Sender: FDA-Public Use
  Company Number: DSA_60737_2012

PATIENT
  Age: 73 Year
  Sex: Male

DRUGS (3)
  1. ENAPREN [Suspect]
     Indication: PRODUCT USED FOR UNKNOWN INDICATION
     Route: 048
     Dates: start: 20080828, end: 20120828
  2. REPAGLINIDE [Concomitant]
  3. MODURETIC [Concomitant]

REACTIONS (4)
  - Fall [None]
  - Confusional state [None]
  - Asthenia [None]
  - Hyponatraemia [None]
